FAERS Safety Report 4559439-6 (Version None)
Quarter: 2005Q1

REPORT INFORMATION
  Report Type: 
  Country: None (occurrence: None)
  Receive Date: 20050119
  Receipt Date: 20050113
  Transmission Date: 20050727
  Serious: Yes (Hospitalization)
  Sender: FDA-Public Use
  Company Number: 2005PK00084

PATIENT
  Age: 84 Year
  Sex: Female
  Weight: 72 kg

DRUGS (9)
  1. NEXIUM [Suspect]
     Dosage: 20 MG BID PO
     Route: 048
  2. MARCOUMAR [Suspect]
     Indication: PULMONARY EMBOLISM
     Dosage: 3 MG DAILY PO
     Route: 048
     Dates: start: 20021101, end: 20041206
  3. INFLAMAC [Suspect]
     Dosage: 75 MG BID PO
     Route: 048
     Dates: end: 20041206
  4. EUTHYROX [Suspect]
     Indication: HYPOTHYROIDISM
     Dosage: 100 UG DAILY PO
     Route: 048
  5. EFFEXOR [Suspect]
     Dosage: 75 MG BID PO
     Route: 048
  6. DILATREND [Concomitant]
  7. TOREM [Concomitant]
  8. SERESTA [Concomitant]
  9. TRAZODONE HCL [Concomitant]

REACTIONS (10)
  - ANAEMIA [None]
  - DRUG INTERACTION [None]
  - DUODENAL ULCER [None]
  - GASTRITIS [None]
  - GASTROINTESTINAL HAEMORRHAGE [None]
  - GASTROINTESTINAL ULCER [None]
  - OBSTRUCTION [None]
  - PROTHROMBIN TIME SHORTENED [None]
  - RECTAL HAEMORRHAGE [None]
  - RESPIRATORY FAILURE [None]
